FAERS Safety Report 9785485 (Version 2)
Quarter: 2014Q1

REPORT INFORMATION
  Report Type: Spontaneous
  Country: US (occurrence: US)
  Receive Date: 20131227
  Receipt Date: 20140226
  Transmission Date: 20141002
  Serious: No
  Sender: FDA-Public Use
  Company Number: US-009507513-1312USA005370

PATIENT
  Age: 76 Year
  Sex: Male

DRUGS (1)
  1. DULERA [Suspect]
     Indication: CHRONIC OBSTRUCTIVE PULMONARY DISEASE
     Dosage: 200 MG ONE PUFF TWICE DAILY
     Route: 055
     Dates: start: 201112

REACTIONS (4)
  - Dyspnoea [Unknown]
  - Product quality issue [Recovered/Resolved]
  - Drug dose omission [Unknown]
  - Incorrect dosage administered [Unknown]
